FAERS Safety Report 23162609 (Version 1)
Quarter: 2023Q4

REPORT INFORMATION
  Report Type: Report from Study
  Country: US (occurrence: US)
  Receive Date: 20231109
  Receipt Date: 20231109
  Transmission Date: 20240110
  Serious: No
  Sender: FDA-Public Use
  Company Number: US-ALXN-202310USA000193US

PATIENT
  Sex: Female

DRUGS (1)
  1. SOLIRIS [Suspect]
     Active Substance: ECULIZUMAB
     Indication: Myasthenia gravis
     Dosage: UNK, UNK, Q2W
     Route: 042

REACTIONS (2)
  - Memory impairment [Unknown]
  - Restlessness [Unknown]

NARRATIVE: CASE EVENT DATE: 20231030
